FAERS Safety Report 9791847 (Version 1)
Quarter: 2014Q1

REPORT INFORMATION
  Report Type: Spontaneous
  Country: FR (occurrence: FR)
  Receive Date: 20140102
  Receipt Date: 20140102
  Transmission Date: 20141002
  Serious: Yes (Disabling)
  Sender: FDA-Public Use
  Company Number: FR-BAYER-2013-157371

PATIENT
  Age: 65 Year
  Sex: Male

DRUGS (1)
  1. CIFLOX [Suspect]
     Indication: PROSTATITIS
     Dosage: 500 MG, BID
     Route: 048
     Dates: start: 20131030

REACTIONS (5)
  - Weight decreased [None]
  - General physical health deterioration [None]
  - Myalgia [Not Recovered/Not Resolved]
  - Depression [Recovered/Resolved]
  - Decreased appetite [None]
